FAERS Safety Report 10301939 (Version 1)
Quarter: 2014Q3

REPORT INFORMATION
  Report Type: Spontaneous
  Country: IT (occurrence: IT)
  Receive Date: 20140714
  Receipt Date: 20140714
  Transmission Date: 20150326
  Serious: Yes (Hospitalization)
  Sender: FDA-Public Use
  Company Number: PHHY2014IT082254

PATIENT
  Age: 34 Year
  Sex: Male

DRUGS (3)
  1. DIBASE [Concomitant]
     Active Substance: CHOLECALCIFEROL
     Dosage: 4 DROPS
     Route: 048
  2. CALCIUM ^SANDOZ^ [Concomitant]
     Active Substance: CALCIUM
     Dosage: 1 G
     Route: 048
  3. ZOMETA [Suspect]
     Active Substance: ZOLEDRONIC ACID
     Indication: OSTEOARTHROPATHY
     Dosage: 4 MG, CYCLIC
     Route: 042
     Dates: start: 20140625, end: 20140625

REACTIONS (4)
  - Vertigo [Unknown]
  - Headache [Unknown]
  - Vomiting [Unknown]
  - Asthenia [Unknown]

NARRATIVE: CASE EVENT DATE: 20140625
